FAERS Safety Report 9155730 (Version 1)
Quarter: 2013Q1

REPORT INFORMATION
  Report Type: Spontaneous
  Country: US (occurrence: US)
  Receive Date: 20130311
  Receipt Date: 20130311
  Transmission Date: 20140127
  Serious: Yes (Hospitalization)
  Sender: FDA-Public Use
  Company Number: US-AMGEN-USASP2013016110

PATIENT
  Age: 43 Year
  Sex: Female

DRUGS (3)
  1. ENBREL [Suspect]
     Indication: PSORIATIC ARTHROPATHY
     Dosage: 50 MG, QWK
     Dates: start: 20071212, end: 201212
  2. ENBREL [Suspect]
     Indication: PSORIASIS
  3. METHOTREXATE [Concomitant]
     Dosage: UNK
     Dates: end: 201210

REACTIONS (7)
  - Small intestine carcinoma [Recovered/Resolved]
  - Duodenal polyp [Recovered/Resolved]
  - Gallbladder disorder [Recovered/Resolved]
  - Hepatic enzyme increased [Recovered/Resolved]
  - Weight decreased [Recovered/Resolved]
  - Decreased appetite [Recovered/Resolved]
  - Psoriasis [Not Recovered/Not Resolved]
